FAERS Safety Report 7234159-8 (Version None)
Quarter: 2011Q1

REPORT INFORMATION
  Report Type: 
  Country: None (occurrence: None)
  Receive Date: 20110119
  Receipt Date: 20110114
  Transmission Date: 20110831
  Serious: Yes (Other)
  Sender: FDA-Public Use
  Company Number: US-PFIZER INC-2011010216

PATIENT
  Sex: Female
  Weight: 61.224 kg

DRUGS (6)
  1. TOPAMAX [Concomitant]
     Indication: NERVE INJURY
     Dosage: 50 MG, 1X/DAY
  2. KLONOPIN [Concomitant]
     Indication: NERVE INJURY
     Dosage: 0.5 MG, 1X/DAY
     Route: 048
  3. NEURONTIN [Suspect]
     Indication: NERVE INJURY
     Dosage: 900 MG, 1X/DAY
     Route: 048
     Dates: start: 19990101, end: 20101101
  4. LYRICA [Suspect]
     Indication: FACE INJURY
     Dosage: 75 MG DAILY
     Route: 048
     Dates: start: 20101101
  5. NEURONTIN [Suspect]
     Dosage: UNK
     Route: 048
     Dates: start: 20110101
  6. LYRICA [Suspect]
     Indication: PRURITUS
     Dosage: 75 MG, 2X/DAY
     Route: 048
     Dates: end: 20110110

REACTIONS (2)
  - DRUG INEFFECTIVE [None]
  - VISION BLURRED [None]
